FAERS Safety Report 9837027 (Version 2)
Quarter: 2014Q1

REPORT INFORMATION
  Report Type: Report from Study
  Country: CA (occurrence: CA)
  Receive Date: 20140123
  Receipt Date: 20140312
  Transmission Date: 20141002
  Serious: Yes (Death)
  Sender: FDA-Public Use
  Company Number: PHHY2014CA007538

PATIENT
  Age: 67 Year
  Sex: Female

DRUGS (15)
  1. ACLASTA [Suspect]
     Indication: OSTEOPOROSIS
     Dosage: 5 MG, ONE APPLICATION PER YEAR
     Route: 042
     Dates: start: 20130411
  2. OXYCODON [Concomitant]
     Dosage: 2.5 MG, UNK
  3. CALCIUM [Concomitant]
     Dosage: 500 UKN, UNK
  4. UNIPHYL [Concomitant]
     Dosage: 400 UKN, UNK
  5. CILAZAPRIL [Concomitant]
     Dosage: 5 UKN, UNK
  6. TRAZODONE [Concomitant]
     Dosage: 25 UKN, UNK
  7. WELLBUTRIN [Concomitant]
     Dosage: 300 UKN, UNK
  8. VITAMIN D [Concomitant]
     Dosage: 1000 U, UNK
  9. VENTOLINE [Concomitant]
     Dosage: UNK UKN, UNK
  10. TIAZAC [Concomitant]
     Dosage: 180 UKN, UNK
  11. PANTOLOC//PANTOPRAZOLE SODIUM SESQUIHYDRATE [Concomitant]
     Dosage: 40 UKN, UNK
  12. BACLOFEN [Concomitant]
     Dosage: 5 UKN, TID
  13. ADVAIR [Concomitant]
     Dosage: UNK UKN, UNK
  14. THEOPHYLLINE [Concomitant]
     Dosage: UNK UKN, UNK
  15. ANTIARRHYTHMIC AGENTS [Concomitant]
     Dosage: UNK UKN, UNK

REACTIONS (6)
  - Sudden death [Fatal]
  - Arrhythmia [Fatal]
  - Myocardial infarction [Fatal]
  - Dyspnoea [Fatal]
  - Abdominal pain [Fatal]
  - Pain [Fatal]
